FAERS Safety Report 18035737 (Version 1)
Quarter: 2020Q3

REPORT INFORMATION
  Report Type: Spontaneous
  Country: CN (occurrence: CN)
  Receive Date: 20200717
  Receipt Date: 20200717
  Transmission Date: 20201103
  Serious: Yes (Hospitalization)
  Sender: FDA-Public Use
  Company Number: CN-BAXTER-2020BAX014332

PATIENT
  Age: 32 Year
  Sex: Female
  Weight: 42 kg

DRUGS (9)
  1. UROMITEXAN [Suspect]
     Active Substance: MESNA
     Indication: PROPHYLAXIS
     Route: 065
     Dates: start: 20200611
  2. VINCRISTINE [Suspect]
     Active Substance: VINCRISTINE
     Indication: RECURRENT CANCER
     Dosage: D1, (PATIENT SELF?PREPARED)
     Route: 041
     Dates: start: 20200611, end: 20200611
  3. VINCRISTINE [Suspect]
     Active Substance: VINCRISTINE
     Indication: FIBROSARCOMA
  4. HOLOXAN [Suspect]
     Active Substance: IFOSFAMIDE
     Indication: RECURRENT CANCER
     Dosage: D1?4, IFOSFAMIDE + SODIUM CHLORIDE (1000 ML)
     Route: 041
     Dates: start: 20200611, end: 20200614
  5. SODIUM CHLORIDE. [Suspect]
     Active Substance: SODIUM CHLORIDE
     Indication: MEDICATION DILUTION
     Dosage: D1, EPIRUBICIN HYDROCHLORIDE 80 MG + SODIUM CHLORIDE
     Route: 041
     Dates: start: 20200611, end: 20200611
  6. HOLOXAN [Suspect]
     Active Substance: IFOSFAMIDE
     Indication: FIBROSARCOMA
  7. PHARMORUBICIN [Suspect]
     Active Substance: EPIRUBICIN
     Indication: FIBROSARCOMA
  8. SODIUM CHLORIDE. [Suspect]
     Active Substance: SODIUM CHLORIDE
     Indication: MEDICATION DILUTION
     Dosage: D1?4, IFOSFAMIDE 2.5 G + SODIUM CHLORIDE
     Route: 041
     Dates: start: 20200611, end: 20200614
  9. PHARMORUBICIN [Suspect]
     Active Substance: EPIRUBICIN
     Indication: RECURRENT CANCER
     Dosage: D1, EPIRUBICIN HYDROCHLORIDE + SODIUM CHLORIDE 100 ML
     Route: 041
     Dates: start: 20200611, end: 20200611

REACTIONS (1)
  - Cystitis haemorrhagic [Recovering/Resolving]

NARRATIVE: CASE EVENT DATE: 20200615
